FAERS Safety Report 10720734 (Version 1)
Quarter: 2015Q1

REPORT INFORMATION
  Report Type: Spontaneous
  Country: US (occurrence: US)
  Receive Date: 20150119
  Receipt Date: 20150119
  Transmission Date: 20150721
  Serious: No
  Sender: FDA-Public Use
  Company Number: US-UNITED THERAPEUTICS-UNT-2014-005977

PATIENT
  Age: 46 Year
  Sex: Female
  Weight: 81.63 kg

DRUGS (3)
  1. TRACLEER [Concomitant]
     Active Substance: BOSENTAN\BOSENTAN MONOHYDRATE
     Indication: PRODUCT USED FOR UNKNOWN INDICATION
  2. SILDENAFIL CITRATE. [Concomitant]
     Active Substance: SILDENAFIL CITRATE
     Indication: PRODUCT USED FOR UNKNOWN INDICATION
  3. REMODULIN [Suspect]
     Active Substance: TREPROSTINIL
     Indication: COR PULMONALE CHRONIC
     Dosage: 0.136 ?G/KG/MIN, CONTINUING
     Route: 058
     Dates: start: 20130301

REACTIONS (11)
  - Dyspnoea [Unknown]
  - Pallor [Unknown]
  - Malaise [Unknown]
  - Infusion site pain [Unknown]
  - Dysphonia [Unknown]
  - Infusion site oedema [Unknown]
  - Fluid retention [Unknown]
  - Nasal congestion [Unknown]
  - Feeling cold [Unknown]
  - Nausea [Unknown]
  - Drug dose omission [Unknown]

NARRATIVE: CASE EVENT DATE: 201408
